FAERS Safety Report 24303937 (Version 1)
Quarter: 2024Q3

REPORT INFORMATION
  Report Type: Spontaneous
  Country: FR (occurrence: FR)
  Receive Date: 20240910
  Receipt Date: 20240910
  Transmission Date: 20241016
  Serious: Yes (Other)
  Sender: SANDOZ
  Company Number: FR-PFIZER INC-2018293508

PATIENT
  Sex: Female

DRUGS (4)
  1. CYCLOPHOSPHAMIDE [Suspect]
     Active Substance: CYCLOPHOSPHAMIDE
     Indication: Triple negative breast cancer
     Dosage: 500 MG, CYCLIC (FOUR CYCLES,MG/M{SUP}2{/SUP}, Q.3 WEEKS)
     Route: 065
  2. DOCETAXEL [Suspect]
     Active Substance: DOCETAXEL\DOCETAXEL ANHYDROUS
     Indication: Triple negative breast cancer
     Dosage: UNK, CYCLIC (FOUR CYCLES, (T: 100 MG/M{SUP}2{/SUP}) Q.3 WEEKS)
     Route: 065
  3. EPIRUBICIN HYDROCHLORIDE [Suspect]
     Active Substance: EPIRUBICIN HYDROCHLORIDE
     Indication: Triple negative breast cancer
     Dosage: 100 MG, CYCLIC (FOUR CYCLES,MG/M{SUP}2{/SUP}, Q.3 WEEKS)
     Route: 065
  4. FLUOROURACIL [Suspect]
     Active Substance: FLUOROURACIL
     Indication: Triple negative breast cancer
     Dosage: 500 MG, CYCLIC (FOUR CYCLES,MG/M{SUP}2{/SUP}, Q.3 WEEKS)
     Route: 065

REACTIONS (1)
  - Skin toxicity [Unknown]
